FAERS Safety Report 6735207-1 (Version None)
Quarter: 2010Q2

REPORT INFORMATION
  Report Type: 
  Country: None (occurrence: None)
  Receive Date: 20100519
  Receipt Date: 20100519
  Transmission Date: 20101027
  Serious: Yes (Disabling)
  Sender: FDA-Public Use
  Company Number: None

PATIENT
  Sex: Female
  Weight: 68.4932 kg

DRUGS (2)
  1. TOPIRAMATE [Suspect]
     Indication: MIGRAINE
     Dosage: 25 MG. 1 @ DAY
     Dates: start: 20100206, end: 20100212
  2. TOPIRAMATE [Suspect]
     Indication: MIGRAINE WITH AURA
     Dosage: 25 MG. 1 @ DAY
     Dates: start: 20100206, end: 20100212

REACTIONS (5)
  - ANGLE CLOSURE GLAUCOMA [None]
  - CATARACT [None]
  - IRIS INJURY [None]
  - MYDRIASIS [None]
  - VISUAL ACUITY REDUCED [None]
